FAERS Safety Report 8543477-2 (Version None)
Quarter: 2012Q3

REPORT INFORMATION
  Report Type: 
  Country: None (occurrence: None)
  Receive Date: 20120727
  Receipt Date: 20120723
  Transmission Date: 20120928
  Serious: Yes (Hospitalization, Other)
  Sender: FDA-Public Use
  Company Number: PHEH2012US005724

PATIENT
  Sex: Female

DRUGS (1)
  1. AREDIA [Suspect]
     Indication: HYPERCALCAEMIA
     Dosage: 90 MG,
     Route: 042

REACTIONS (12)
  - GASTROINTESTINAL HAEMORRHAGE [None]
  - ATELECTASIS [None]
  - INTERVERTEBRAL DISC DEGENERATION [None]
  - CHOLECYSTITIS [None]
  - MULTIPLE MYELOMA [None]
  - PLEURAL EFFUSION [None]
  - TINNITUS [None]
  - CONSTIPATION [None]
  - COMPRESSION FRACTURE [None]
  - ENDOCARDITIS [None]
  - OSTEOLYSIS [None]
  - VISION BLURRED [None]
